FAERS Safety Report 7890071-2 (Version None)
Quarter: 2011Q4

REPORT INFORMATION
  Report Type: 
  Country: None (occurrence: None)
  Receive Date: 20111103
  Receipt Date: 20111031
  Transmission Date: 20120403
  Serious: Yes (Other)
  Sender: FDA-Public Use
  Company Number: CA-ROCHE-733759

PATIENT
  Sex: Female
  Weight: 109.8 kg

DRUGS (12)
  1. NEURONTIN [Concomitant]
  2. MAGNESIUM [Concomitant]
  3. LYRICA [Concomitant]
  4. FEMARA [Concomitant]
  5. CRESTOR [Concomitant]
  6. AVASTIN [Suspect]
     Dosage: INFUSION SCHEDULED FOR 4-FEB-2011 WAS CANCELLED
     Route: 042
  7. DIABETA [Concomitant]
     Indication: DIABETES MELLITUS
  8. PANTOPRAZOLE SODIUM [Concomitant]
  9. GLUCOSAMINE [Concomitant]
  10. AVASTIN [Suspect]
     Indication: BREAST CANCER
     Dosage: FORM-INFUSION; INFUSION SCHEDULED FOR 11 NOV 10 WAS CANCELLED
     Route: 042
  11. AVASTIN [Suspect]
     Route: 042
  12. CALCIUM CARBONATE [Concomitant]

REACTIONS (10)
  - ABDOMINAL PAIN [None]
  - VULVOVAGINAL DISCOMFORT [None]
  - NEOPLASM PROGRESSION [None]
  - HAEMOPTYSIS [None]
  - NON-CARDIAC CHEST PAIN [None]
  - DIARRHOEA [None]
  - BACTERIAL TEST [None]
  - MUSCLE SPASMS [None]
  - PHARYNGITIS [None]
  - WHITE BLOOD CELL COUNT DECREASED [None]
